FAERS Safety Report 10244524 (Version 1)
Quarter: 2014Q1

REPORT INFORMATION
  Report Type: Spontaneous
  Country: US (occurrence: None)
  Receive Date: 20140306
  Receipt Date: 20140306
  Transmission Date: 20141002
  Serious: Yes (Other)
  Sender: FDA-Public Use
  Company Number: 163-21880-13030154

PATIENT
  Age: 79 Year
  Sex: Male
  Weight: 93.99 kg

DRUGS (17)
  1. REVLIMID (LENALIDOMIDE) (CAPSULES) [Suspect]
     Indication: PLASMA CELL MYELOMA
     Dosage: 5 MG, 1 IN 1 D, PO  01/07/2013 - 03/12/2013 THERAPY DATES
     Route: 048
     Dates: start: 20130107, end: 20130312
  2. DECADRON (DEXAMETHASONE) [Concomitant]
  3. ASPRIN (ACETYLSALICYLIC ACID) [Concomitant]
  4. VITAMIN D3 (COLECALCIFEROL) [Concomitant]
  5. MULTIVITAMIN (MULTIVITAMINS) [Concomitant]
  6. OMEGA-3 FATTY ACIDS [Concomitant]
  7. FOLIC ACID [Concomitant]
  8. LORAZEPAM [Concomitant]
  9. ACYCLOVIR [Concomitant]
  10. VITAMINS [Concomitant]
  11. VITAMIN C-VITAMIN E-LUTEIN-MINERALS (MULTIVITAMINS + MINERALS PLUS LUTEIN) [Concomitant]
  12. AFLIBERCEPT [Concomitant]
  13. METOPROLOL SUCCINATE [Concomitant]
  14. WARFARIN [Concomitant]
  15. ATORVASTATIN [Concomitant]
  16. ISOSORBIDE MONONITRATE [Concomitant]
  17. AMLODIPINE [Concomitant]

REACTIONS (4)
  - White blood cell count decreased [None]
  - Neutrophil count decreased [None]
  - Platelet count decreased [None]
  - Haemoglobin decreased [None]
